FAERS Safety Report 9726358 (Version 1)
Quarter: 2013Q4

REPORT INFORMATION
  Report Type: Spontaneous
  Country: US (occurrence: None)
  Receive Date: 20131202
  Receipt Date: 20131202
  Transmission Date: 20140711
  Serious: Yes (Other)
  Sender: FDA-Public Use
  Company Number: None

PATIENT
  Age: 86 Year
  Sex: Female

DRUGS (8)
  1. XARELTO [Suspect]
     Indication: ATRIAL FIBRILLATION
     Dosage: 1 TAB QHS/BEDTIME ORAL
     Route: 048
     Dates: start: 20130711, end: 20130713
  2. OMPERAZOLE [Concomitant]
  3. TRAZODONE [Concomitant]
  4. METOPROLOL [Concomitant]
  5. ESCITALOPRAM [Concomitant]
  6. VESICARE [Concomitant]
  7. DIGOXIN [Concomitant]
  8. FUROSEMIDE [Concomitant]

REACTIONS (2)
  - Haematuria [None]
  - Urinary retention [None]
